FAERS Safety Report 8031873-1 (Version None)
Quarter: 2012Q1

REPORT INFORMATION
  Report Type: 
  Country: None (occurrence: None)
  Receive Date: 20120109
  Receipt Date: 20111229
  Transmission Date: 20120608
  Serious: Yes (Hospitalization)
  Sender: FDA-Public Use
  Company Number: DE-ASTRAZENECA-2011SE67096

PATIENT
  Sex: Female

DRUGS (10)
  1. SEROQUEL [Suspect]
     Route: 048
     Dates: start: 20100101, end: 20111001
  2. HYPNOREX RET. [Concomitant]
     Route: 048
     Dates: start: 20100101
  3. SEROQUEL [Suspect]
     Indication: DEPRESSION
     Route: 048
     Dates: start: 20060101, end: 20070101
  4. SEROQUEL [Suspect]
     Route: 048
     Dates: start: 20060101, end: 20070101
  5. HYPNOREX RET. [Concomitant]
     Indication: BIPOLAR I DISORDER
     Route: 048
     Dates: start: 20100101
  6. SEROQUEL [Suspect]
     Route: 048
     Dates: start: 20100101, end: 20111001
  7. SEROQUEL [Suspect]
     Indication: BIPOLAR I DISORDER
     Route: 048
     Dates: start: 20060101, end: 20070101
  8. SEROQUEL [Suspect]
     Route: 048
     Dates: start: 20100101, end: 20111001
  9. VENLAFAXIN RET. [Concomitant]
     Route: 048
     Dates: start: 20050101
  10. VENLAFAXIN RET. [Concomitant]
     Indication: BIPOLAR I DISORDER
     Route: 048
     Dates: start: 20050101

REACTIONS (1)
  - ORGANISING PNEUMONIA [None]
